FAERS Safety Report 6031058-4 (Version None)
Quarter: 2009Q1

REPORT INFORMATION
  Report Type: 
  Country: None (occurrence: None)
  Receive Date: 20090108
  Receipt Date: 20090106
  Transmission Date: 20090719
  Serious: Yes (Other)
  Sender: FDA-Public Use
  Company Number: BR-BRISTOL-MYERS SQUIBB COMPANY-14435614

PATIENT
  Age: 74 Year
  Sex: Female

DRUGS (4)
  1. ABATACEPT [Suspect]
     Indication: RHEUMATOID ARTHRITIS
     Dosage: NO. OF COURSES: 19
     Route: 042
     Dates: start: 20070517, end: 20081215
  2. METHOTREXATE [Concomitant]
     Dates: start: 20060712, end: 20081128
  3. PREDNISOLONE [Concomitant]
     Dates: start: 20050701
  4. AVANDAMET [Concomitant]
     Dosage: 1 DF = 8MG/1000MG
     Dates: start: 20071210, end: 20081204

REACTIONS (1)
  - ENDOCARDITIS [None]
